FAERS Safety Report 21944922 (Version 1)
Quarter: 2023Q1

REPORT INFORMATION
  Report Type: Spontaneous
  Country: US (occurrence: US)
  Receive Date: 20230202
  Receipt Date: 20230202
  Transmission Date: 20230417
  Serious: No
  Sender: FDA-Public Use
  Company Number: US-PFIZER INC-202300045942

PATIENT
  Age: 78 Year
  Sex: Male

DRUGS (9)
  1. PAXLOVID [Suspect]
     Active Substance: NIRMATRELVIR\RITONAVIR
     Indication: COVID-19 treatment
     Dosage: [PF-07321332 300 MG]/[RITONAVIR 100 MG]; 2X/DAY
     Dates: start: 20230127
  2. MEMANTINE [Concomitant]
     Active Substance: MEMANTINE
     Indication: Dementia
     Dosage: 10 MG
     Dates: start: 202209
  3. FLUDROCORTISONE ACETATE [Concomitant]
     Active Substance: FLUDROCORTISONE ACETATE
     Indication: Blood pressure decreased
     Dosage: 0.1 MG
     Dates: start: 202205
  4. MIDODRINE [Concomitant]
     Active Substance: MIDODRINE
     Indication: Blood pressure decreased
     Dosage: 5 MG, 3X/DAY
     Dates: start: 202205
  5. ASPIRIN [Concomitant]
     Active Substance: ASPIRIN
     Indication: Vascular stenosis
     Dosage: UNK, 1X/DAY
  6. FOLIC ACID [Concomitant]
     Active Substance: FOLIC ACID
     Indication: Vitamin supplementation
     Dosage: UNK
     Dates: start: 202204
  7. VITAMIN B1 [Concomitant]
     Active Substance: THIAMINE HYDROCHLORIDE
     Indication: Vitamin supplementation
     Dosage: UNK
     Dates: start: 202204
  8. LORAZEPAM [Concomitant]
     Active Substance: LORAZEPAM
     Indication: Dementia
     Dosage: PRESCRIBED 0.5MG EVERY EVENING; ONLY GIVES HIM HALF, SO 0.25MG UNLESS HE NEEDS THE ADDITIONAL 0.25MG
     Dates: start: 202205
  9. LORAZEPAM [Concomitant]
     Active Substance: LORAZEPAM
     Indication: Agitation

REACTIONS (4)
  - Product dose omission issue [Unknown]
  - Product use complaint [Unknown]
  - Intentional product misuse [Unknown]
  - Wrong technique in product usage process [Unknown]

NARRATIVE: CASE EVENT DATE: 20230127
